FAERS Safety Report 24630919 (Version 1)
Quarter: 2024Q4

REPORT INFORMATION
  Report Type: Spontaneous
  Country: GB (occurrence: GB)
  Receive Date: 20241118
  Receipt Date: 20241118
  Transmission Date: 20250115
  Serious: Yes (Other)
  Sender: TORRENT PHARMA INC.
  Company Number: None

PATIENT
  Age: 72 Year
  Sex: Female
  Weight: 68 kg

DRUGS (1)
  1. ROSUVASTATIN [Suspect]
     Active Substance: ROSUVASTATIN
     Indication: Blood cholesterol
     Dosage: 5MG
     Route: 065
     Dates: start: 20241012, end: 20241106

REACTIONS (8)
  - Nausea [Not Recovered/Not Resolved]
  - Eye swelling [Not Recovered/Not Resolved]
  - Headache [Not Recovered/Not Resolved]
  - Facial pain [Not Recovered/Not Resolved]
  - Eyelid pain [Unknown]
  - Crying [Unknown]
  - Drug hypersensitivity [Unknown]
  - Eye discharge [Unknown]

NARRATIVE: CASE EVENT DATE: 20241012
